FAERS Safety Report 7957144-7 (Version None)
Quarter: 2011Q4

REPORT INFORMATION
  Report Type: 
  Country: None (occurrence: None)
  Receive Date: 20111205
  Receipt Date: 20111125
  Transmission Date: 20120403
  Serious: Yes (Hospitalization, Other)
  Sender: FDA-Public Use
  Company Number: US-ASTRAZENECA-2010SE38096

PATIENT
  Age: 62 Year
  Sex: Female

DRUGS (1)
  1. NEXIUM [Suspect]
     Route: 048

REACTIONS (8)
  - ABDOMINAL PAIN UPPER [None]
  - NEPHROLITHIASIS [None]
  - ABDOMINAL DISTENSION [None]
  - HIATUS HERNIA [None]
  - PNEUMONIA ASPIRATION [None]
  - INCORRECT DOSE ADMINISTERED [None]
  - COLON NEOPLASM [None]
  - DRUG DOSE OMISSION [None]
